FAERS Safety Report 4565510-5 (Version None)
Quarter: 2005Q1

REPORT INFORMATION
  Report Type: 
  Country: None (occurrence: None)
  Receive Date: 20050131
  Receipt Date: 20040127
  Transmission Date: 20050727
  Serious: Yes (Other)
  Sender: FDA-Public Use
  Company Number: FR-GLAXOSMITHKLINE-B0321420A

PATIENT
  Age: 42 Year
  Sex: Female
  Weight: 105 kg

DRUGS (7)
  1. AVANDIA [Suspect]
     Dosage: 4MG PER DAY
     Route: 048
     Dates: start: 20030513, end: 20030605
  2. DAONIL [Concomitant]
     Dosage: 5MG THREE TIMES PER DAY
     Route: 048
     Dates: start: 20000101
  3. VASTEN [Concomitant]
     Dosage: 20MG PER DAY
     Route: 048
     Dates: start: 20030120
  4. KARDEGIC [Concomitant]
     Indication: THROMBOSIS PROPHYLAXIS
     Dosage: 75MG PER DAY
     Route: 048
     Dates: start: 20021201
  5. RAMIPRIL [Concomitant]
     Indication: HYPERTENSION
     Dosage: 5MG TWICE PER DAY
     Route: 048
  6. TENORETIC 100 [Concomitant]
     Dosage: 1TAB PER DAY
     Route: 048
     Dates: start: 20000101
  7. NEURONTIN [Concomitant]
     Dosage: 300MG SIX TIMES PER DAY
     Route: 048
     Dates: start: 20030401

REACTIONS (2)
  - OEDEMA PERIPHERAL [None]
  - PALPITATIONS [None]
